FAERS Safety Report 5268282-4 (Version None)
Quarter: 2007Q1

REPORT INFORMATION
  Report Type: 
  Country: None (occurrence: None)
  Receive Date: 20070313
  Receipt Date: 20070308
  Transmission Date: 20070707
  Serious: Yes (Hospitalization)
  Sender: FDA-Public Use
  Company Number: E2090-00186-SPO-ES

PATIENT
  Age: 7 Year
  Sex: Male
  Weight: 32 kg

DRUGS (5)
  1. ZONEGRAN [Suspect]
     Indication: EPILEPSY
     Dosage: 25 MG, 1 IN 1 D, ORAL
     Route: 048
     Dates: start: 20070215, end: 20070222
  2. DEPAKENE [Concomitant]
  3. LAMICTAL [Concomitant]
  4. KEPPRA [Concomitant]
  5. LEVOTHYROXINE SODIUM [Concomitant]

REACTIONS (12)
  - ATELECTASIS [None]
  - DEPRESSED LEVEL OF CONSCIOUSNESS [None]
  - ENCEPHALOPATHY [None]
  - HEPATIC FAILURE [None]
  - HYPOVENTILATION [None]
  - METABOLIC DISORDER [None]
  - OBESITY [None]
  - PROTHROMBIN TIME PROLONGED [None]
  - PULMONARY CONGESTION [None]
  - RESPIRATORY FAILURE [None]
  - RHABDOMYOLYSIS [None]
  - SUPERINFECTION [None]
